FAERS Safety Report 4981773-6 (Version None)
Quarter: 2006Q2

REPORT INFORMATION
  Report Type: 
  Country: None (occurrence: None)
  Receive Date: 20060421
  Receipt Date: 20060412
  Transmission Date: 20061013
  Serious: Yes (Other)
  Sender: FDA-Public Use
  Company Number: HQWYE835014APR06

PATIENT
  Sex: Female
  Weight: 56.75 kg

DRUGS (1)
  1. ADVIL [Suspect]
     Indication: HEADACHE
     Dosage: 1 TABLET EVERY 4 HOURS AS NEEDED, ORAL
     Route: 048
     Dates: start: 20050101, end: 20050901

REACTIONS (5)
  - ACUTE MYELOID LEUKAEMIA [None]
  - BLOOD URINE PRESENT [None]
  - BONE MARROW FAILURE [None]
  - HAEMATOTOXICITY [None]
  - PLATELET COUNT DECREASED [None]
